FAERS Safety Report 14463691 (Version 1)
Quarter: 2018Q1

REPORT INFORMATION
  Report Type: Report from Study
  Country: FR (occurrence: FR)
  Receive Date: 20180130
  Receipt Date: 20180130
  Transmission Date: 20180509
  Serious: Yes (Other)
  Sender: FDA-Public Use
  Company Number: FR-GLAXOSMITHKLINE-FR2018011470

PATIENT
  Sex: Male

DRUGS (3)
  1. DIDANOSINE. [Suspect]
     Active Substance: DIDANOSINE
     Indication: HIV INFECTION
     Dosage: UNK
     Route: 064
  2. LAMIVUDINE. [Suspect]
     Active Substance: LAMIVUDINE
     Indication: HIV INFECTION
     Dosage: UNK
     Route: 064
  3. ZIDOVUDINE. [Suspect]
     Active Substance: ZIDOVUDINE
     Indication: HIV INFECTION
     Route: 064

REACTIONS (2)
  - Pinealoblastoma [Unknown]
  - Foetal exposure during pregnancy [Recovered/Resolved]

NARRATIVE: CASE EVENT DATE: 2001
